FAERS Safety Report 9976416 (Version 1)
Quarter: 2014Q1

REPORT INFORMATION
  Report Type: Report from Study
  Country: US (occurrence: US)
  Receive Date: 20140306
  Receipt Date: 20140306
  Transmission Date: 20141002
  Serious: No
  Sender: FDA-Public Use
  Company Number: US-ABBVIE-13P-163-1167198-00

PATIENT
  Age: 61 Year
  Sex: Male
  Weight: 104.42 kg

DRUGS (8)
  1. HUMIRA [Suspect]
     Indication: COLITIS ULCERATIVE
     Dates: start: 201302, end: 201302
  2. HUMIRA [Suspect]
     Dates: end: 2013
  3. HUMIRA [Suspect]
     Dates: end: 201309
  4. AZATHIOPRINE [Concomitant]
     Indication: COLITIS ULCERATIVE
     Dates: start: 201310
  5. PREDNISONE [Concomitant]
     Indication: COLITIS ULCERATIVE
  6. LOTREL [Concomitant]
     Indication: HYPERTENSION
  7. OMEPRAZOLE [Concomitant]
     Indication: GASTROOESOPHAGEAL REFLUX DISEASE
  8. STEROID SUPPOSITORY [Concomitant]
     Indication: COLITIS ULCERATIVE

REACTIONS (1)
  - Drug ineffective [Not Recovered/Not Resolved]
